FAERS Safety Report 4985095-9 (Version None)
Quarter: 2006Q1

REPORT INFORMATION
  Report Type: 
  Country: None (occurrence: None)
  Receive Date: 20060303
  Receipt Date: 20000211
  Transmission Date: 20060701
  Serious: Yes (Other)
  Sender: FDA-Public Use
  Company Number: PHEH2000US08189

PATIENT
  Age: 62 Year
  Sex: Male

DRUGS (3)
  1. NEORAL [Suspect]
     Indication: TRANSPLANT
     Dosage: 50 MG, BID, ORAL
     Route: 048
     Dates: start: 19910301
  2. METHYLPREDNISOLONE (METHYLPRDNISOLONE) [Concomitant]
  3. FLUCONAZOLE [Concomitant]

REACTIONS (1)
  - PANCREATITIS [None]
